FAERS Safety Report 24746491 (Version 1)
Quarter: 2024Q4

REPORT INFORMATION
  Report Type: Spontaneous
  Country: GB (occurrence: GB)
  Receive Date: 20241218
  Receipt Date: 20241218
  Transmission Date: 20250115
  Serious: Yes (Other)
  Sender: AUROBINDO
  Company Number: GB-MHRA-TPP24335077C6521722YC1733134968189

PATIENT
  Age: 59 Year
  Sex: Female
  Weight: 87 kg

DRUGS (10)
  1. CLARITHROMYCIN [Suspect]
     Active Substance: CLARITHROMYCIN
     Indication: Product used for unknown indication
     Dosage: UNK
     Route: 065
  2. XAILIN NIGHT [Concomitant]
     Indication: Product used for unknown indication
     Dosage: APPLY TO THE AFFECTED EYE(S), DAILY
     Route: 065
     Dates: start: 20241118
  3. DOXYCYCLINE [Concomitant]
     Active Substance: DOXYCYCLINE
     Indication: Product used for unknown indication
     Dosage: 2 DOSAGE FORM (ACUTE COUGH/BRONCHITIS)
     Route: 065
     Dates: start: 20241202
  4. LEVOTHYROXINE [Concomitant]
     Active Substance: LEVOTHYROXINE
     Indication: Product used for unknown indication
     Dosage: 2 DOSAGE FORM, EVERY MORNING (FOR UNDERACTIVE THYROI)
     Route: 065
     Dates: start: 20200313
  5. CHOLECALCIFEROL [Concomitant]
     Active Substance: CHOLECALCIFEROL
     Indication: Product used for unknown indication
     Dosage: 2 OD
     Route: 065
     Dates: start: 20210521
  6. DOCUSATE SODIUM [Concomitant]
     Active Substance: DOCUSATE SODIUM
     Indication: Product used for unknown indication
     Dosage: 2 DOSAGE FORM, TWO TIMES A DAY (FOR CONSTIPATION)
     Route: 065
     Dates: start: 20210521
  7. OMEPRAZOLE [Concomitant]
     Active Substance: OMEPRAZOLE
     Indication: Product used for unknown indication
     Dosage: 1 DOSAGE FORM, DAILY (TO REDUCE STOMACH ACID / PROTECT)
     Route: 065
     Dates: start: 20210521
  8. Hylo night [Concomitant]
     Indication: Product used for unknown indication
     Dosage: APPLY TO BOTH EYES AT NIGHT AS AN EYE LUBRICANT, ONCE A DAY
     Route: 065
     Dates: start: 20220307
  9. HYLO FORTE [Concomitant]
     Indication: Product used for unknown indication
     Dosage: 1 DROP, INTO THE AFFECTED EYE(S) AS NECESSARY
     Route: 065
     Dates: start: 20220307
  10. CITALOPRAM [Concomitant]
     Active Substance: CITALOPRAM
     Indication: Product used for unknown indication
     Dosage: 1 DOSAGE FORM, DAILY
     Route: 065
     Dates: start: 20231123

REACTIONS (2)
  - Oral mucosal blistering [Recovering/Resolving]
  - Gingival blister [Recovering/Resolving]
